FAERS Safety Report 9552829 (Version 1)
Quarter: 2013Q3

REPORT INFORMATION
  Report Type: Spontaneous
  Country: US (occurrence: None)
  Receive Date: 20130917
  Receipt Date: 20130917
  Transmission Date: 20140515
  Serious: Yes (Hospitalization)
  Sender: FDA-Public Use
  Company Number: 2013PROUSA03087

PATIENT
  Age: 77 Year
  Sex: Male
  Weight: 72.1 kg

DRUGS (1)
  1. PROVENGE [Suspect]
     Indication: PROSTATE CANCER METASTATIC
     Dosage: 250 ML, SINGLE, IV
     Route: 042
     Dates: start: 20130718, end: 20130718

REACTIONS (5)
  - Product sterility lacking [None]
  - Candida test positive [None]
  - Malaise [None]
  - General physical condition abnormal [None]
  - Product contamination microbial [None]
